FAERS Safety Report 6646994-5 (Version None)
Quarter: 2010Q1

REPORT INFORMATION
  Report Type: 
  Country: None (occurrence: None)
  Receive Date: 20100323
  Receipt Date: 20100311
  Transmission Date: 20100710
  Serious: Yes (Hospitalization, Other)
  Sender: FDA-Public Use
  Company Number: US-PFIZER INC-2010032007

PATIENT
  Sex: Male
  Weight: 93.424 kg

DRUGS (7)
  1. XALATAN [Suspect]
     Dosage: 2 GTT, 1X/DAY
     Route: 047
     Dates: start: 20090101
  2. ACETYLSALICYLIC ACID [Concomitant]
     Dosage: 81 MG, 1X/DAY
     Route: 048
  3. PLAVIX [Concomitant]
     Dosage: 75 MG, 1X/DAY
     Route: 048
  4. ISOSORBIDE MONONITRATE [Concomitant]
     Dosage: 90 MG, 1X/DAY
     Route: 048
  5. METOPROLOL [Concomitant]
     Indication: ARRHYTHMIA
     Dosage: 300 MG, 1X/DAY
     Route: 048
  6. MULTI-VITAMINS [Concomitant]
     Route: 048
  7. DILTIAZEM HYDROCHLORIDE [Concomitant]
     Dosage: UNK
     Route: 048
     Dates: end: 20100101

REACTIONS (1)
  - MYOCARDIAL INFARCTION [None]
